FAERS Safety Report 8016050-2 (Version None)
Quarter: 2011Q4

REPORT INFORMATION
  Report Type: 
  Country: None (occurrence: None)
  Receive Date: 20111230
  Receipt Date: 20111206
  Transmission Date: 20120403
  Serious: Yes (Hospitalization)
  Sender: FDA-Public Use
  Company Number: IT-BAYER-2011-116635

PATIENT
  Age: 84 Year
  Sex: Female

DRUGS (9)
  1. OXYCODONE AND ACETAMINOPHEN [Concomitant]
     Indication: RHEUMATOID ARTHRITIS
     Dosage: DAILY DOSE 3 DF
     Route: 048
  2. ASPIRIN [Suspect]
     Indication: TRANSIENT ISCHAEMIC ATTACK
     Dosage: 100 MG, QD
     Route: 048
     Dates: start: 19920101, end: 20110929
  3. PANTOPRAZOLE [Concomitant]
     Indication: PROPHYLAXIS AGAINST GASTROINTESTINAL ULCER
     Dosage: DAILY DOSE 40 MG
     Route: 048
  4. MICARDIS [Concomitant]
     Indication: HYPERTENSION
     Dosage: DAILY DOSE 40 MG
     Route: 048
  5. GABAPENTIN [Concomitant]
     Indication: NEURALGIA
     Dosage: DAILY DOSE 300 MG
     Route: 048
  6. PREDNISONE TAB [Concomitant]
     Indication: RHEUMATOID ARTHRITIS
     Dosage: DAILY DOSE 12.5 MG
     Route: 048
  7. OXYCONTIN [Concomitant]
     Indication: PAIN
     Dosage: DAILY DOSE 30 MG
     Route: 048
  8. FUROSEMIDE [Concomitant]
     Indication: HYPERTENSION
     Dosage: DAILY DOSE 25 MG
     Route: 048
  9. CLONAZEPAM [Concomitant]
     Indication: GRAND MAL CONVULSION
     Dosage: DAILY DOSE 6 GTT
     Route: 048

REACTIONS (2)
  - ANAEMIA [None]
  - MELAENA [None]
